FAERS Safety Report 7293723-0 (Version None)
Quarter: 2011Q1

REPORT INFORMATION
  Report Type: 
  Country: None (occurrence: None)
  Receive Date: 20110215
  Receipt Date: 20110209
  Transmission Date: 20110831
  Serious: Yes (Other)
  Sender: FDA-Public Use
  Company Number: US-SANOFI-AVENTIS-2011SA008991

PATIENT
  Age: 69 Year
  Sex: Female

DRUGS (1)
  1. LANTUS [Suspect]
     Indication: TYPE 2 DIABETES MELLITUS
     Dosage: 15- 28 UNITS DAILY
     Route: 058

REACTIONS (7)
  - FALL [None]
  - HEADACHE [None]
  - PAIN [None]
  - CONVULSION [None]
  - ROTATOR CUFF SYNDROME [None]
  - TREMOR [None]
  - NASOPHARYNGITIS [None]
